FAERS Safety Report 8554318-1 (Version None)
Quarter: 2012Q3

REPORT INFORMATION
  Report Type: 
  Country: None (occurrence: None)
  Receive Date: 20120731
  Receipt Date: 20120719
  Transmission Date: 20120928
  Serious: Yes (Congenital Anomaly)
  Sender: FDA-Public Use
  Company Number: ZA-B.I. PHARMACEUTICALS,INC./RIDGEFIELD-2009-BP-12571BP

PATIENT
  Sex: Female
  Weight: 3.34 kg

DRUGS (3)
  1. VIRAMUNE [Suspect]
     Indication: VERTICAL INFECTION TRANSMISSION
     Route: 064
     Dates: start: 20090227
  2. EFAVIRENZ (STOCRIN, EFV) [Suspect]
     Indication: VERTICAL INFECTION TRANSMISSION
     Route: 064
     Dates: start: 20050301
  3. COMBIVIR [Suspect]
     Indication: VERTICAL INFECTION TRANSMISSION
     Route: 064
     Dates: start: 20050301

REACTIONS (1)
  - TOOTH DISORDER [None]
